FAERS Safety Report 4428665-9 (Version None)
Quarter: 2004Q3

REPORT INFORMATION
  Report Type: 
  Country: None (occurrence: None)
  Receive Date: 20040818
  Receipt Date: 20030926
  Transmission Date: 20050211
  Serious: Yes (Other)
  Sender: FDA-Public Use
  Company Number: US-BRISTOL-MYERS SQUIBB COMPANY-12396313

PATIENT
  Sex: Male

DRUGS (2)
  1. TEQUIN [Suspect]
  2. VIAGRA [Concomitant]

REACTIONS (1)
  - BLOOD PRESSURE DECREASED [None]
